FAERS Safety Report 8951144 (Version 3)
Quarter: 2012Q4

REPORT INFORMATION
  Report Type: 
  Country: JP (occurrence: JP)
  Receive Date: 20121207
  Receipt Date: 20121221
  Transmission Date: 20130627
  Serious: Yes (Life-Threatening, Hospitalization, Disabling)
  Sender: FDA-Public Use
  Company Number: JP-B.I. PHARMACEUTICALS,INC./RIDGEFIELD-2012-BP-27350NB

PATIENT
  Age: 72 Year
  Sex: Female
  Weight: 35 kg

DRUGS (2)
  1. PRAZAXA [Suspect]
     Indication: ATRIAL FIBRILLATION
     Dosage: 220 mg
     Route: 048
     Dates: start: 20120924, end: 20121030
  2. TAKEPRON [Concomitant]
     Indication: PROPHYLAXIS AGAINST GASTROINTESTINAL ULCER
     Dosage: 15 mg
     Route: 048
     Dates: start: 20111017

REACTIONS (2)
  - Haemoptysis [Recovered/Resolved]
  - Cerebral infarction [Recovered/Resolved with Sequelae]
